FAERS Safety Report 10198201 (Version 1)
Quarter: 2014Q2

REPORT INFORMATION
  Report Type: Spontaneous
  Country: SE (occurrence: SE)
  Receive Date: 20140527
  Receipt Date: 20140527
  Transmission Date: 20141212
  Serious: Yes (Other)
  Sender: FDA-Public Use
  Company Number: SE-TEVA-482491ISR

PATIENT
  Age: 18 Year
  Sex: Female

DRUGS (2)
  1. FLUOXETIN TEVA [Suspect]
     Indication: ASPERGER^S DISORDER
     Dosage: 40 MILLIGRAM DAILY;
     Route: 048
     Dates: start: 201310
  2. FLUOXETIN TEVA [Suspect]
     Indication: SELF INJURIOUS BEHAVIOUR

REACTIONS (4)
  - Self injurious behaviour [Unknown]
  - Asperger^s disorder [Unknown]
  - Alanine aminotransferase increased [Not Recovered/Not Resolved]
  - Disease recurrence [None]
